FAERS Safety Report 5812717-2 (Version None)
Quarter: 2008Q3

REPORT INFORMATION
  Report Type: 
  Country: None (occurrence: None)
  Receive Date: 20080711
  Receipt Date: 20080703
  Transmission Date: 20090109
  Serious: Yes (Death)
  Sender: FDA-Public Use
  Company Number: 163-21880-08070224

PATIENT
  Age: 78 Year
  Sex: Male

DRUGS (2)
  1. REVLIMID [Suspect]
     Indication: MULTIPLE MYELOMA
     Dosage: 25MG - 10MG, DAILY, ORAL; 15 MG, 1 IN 1 D, ORAL
     Route: 048
     Dates: start: 20070530, end: 20071101
  2. REVLIMID [Suspect]
     Indication: MULTIPLE MYELOMA
     Dosage: 25MG - 10MG, DAILY, ORAL; 15 MG, 1 IN 1 D, ORAL
     Route: 048
     Dates: start: 20080411, end: 20080101

REACTIONS (1)
  - DISEASE PROGRESSION [None]
